FAERS Safety Report 4884981-8 (Version None)
Quarter: 2006Q1

REPORT INFORMATION
  Report Type: 
  Country: None (occurrence: None)
  Receive Date: 20060119
  Receipt Date: 20060117
  Transmission Date: 20060701
  Serious: Yes (Death)
  Sender: FDA-Public Use
  Company Number: PHBS2006NL00940

PATIENT
  Age: 74 Year
  Sex: Female

DRUGS (2)
  1. TRANYLCYPROMINE [Concomitant]
     Dosage: 10 MG, BID
     Dates: start: 20050901
  2. LEPONEX [Suspect]
     Indication: PSYCHOTIC DISORDER
     Dosage: 37.5 MG, QD
     Route: 048
     Dates: start: 20050702

REACTIONS (1)
  - SUDDEN CARDIAC DEATH [None]
